FAERS Safety Report 4502069-2 (Version None)
Quarter: 2004Q4

REPORT INFORMATION
  Report Type: 
  Country: None (occurrence: None)
  Receive Date: 20041116
  Receipt Date: 20040303
  Transmission Date: 20050328
  Serious: Yes (Hospitalization)
  Sender: FDA-Public Use
  Company Number: DE-MERCK-0403DEU00022

PATIENT
  Age: 82 Year
  Sex: Female

DRUGS (11)
  1. VIOXX [Suspect]
     Indication: PAIN
     Route: 048
     Dates: start: 20030801, end: 20031108
  2. QUINAPRIL HYDROCHLORIDE [Suspect]
     Indication: HYPERTENSION
     Route: 048
     Dates: end: 20031108
  3. ACYCLOVIR [Concomitant]
     Indication: HERPES ZOSTER
     Route: 048
     Dates: start: 20031001, end: 20031108
  4. THIOCTIC ACID [Concomitant]
     Indication: POLYNEUROPATHY
     Route: 048
     Dates: end: 20031108
  5. GLIMEPIRIDE [Suspect]
     Indication: DIABETES MELLITUS
     Route: 048
     Dates: end: 20031108
  6. PIRETANIDE [Suspect]
     Indication: HYPERTENSION
     Route: 048
     Dates: end: 20031108
  7. HYDROXYZINE HYDROCHLORIDE [Concomitant]
     Indication: AGITATION
     Route: 048
     Dates: end: 20031108
  8. BISOPROLOL [Concomitant]
     Indication: HYPERTENSION
     Route: 048
     Dates: end: 20031108
  9. TOLPERISONE HYDROCHLORIDE [Concomitant]
     Indication: PAIN
     Route: 048
     Dates: start: 20031001, end: 20031108
  10. DIPYRONE [Suspect]
     Indication: PAIN
     Route: 048
     Dates: start: 20031001, end: 20031108
  11. PROCAINE HYDROCHLORIDE [Concomitant]
     Indication: PAIN
     Route: 041
     Dates: end: 20031104

REACTIONS (3)
  - BLOOD POTASSIUM DECREASED [None]
  - DRUG INTERACTION [None]
  - HYPONATRAEMIA [None]
